FAERS Safety Report 8462270-2 (Version None)
Quarter: 2012Q2

REPORT INFORMATION
  Report Type: 
  Country: None (occurrence: None)
  Receive Date: 20120625
  Receipt Date: 20120611
  Transmission Date: 20120825
  Serious: Yes (Other)
  Sender: FDA-Public Use
  Company Number: US-SHIONOGI, INC-2012000200

PATIENT

DRUGS (1)
  1. KAPVAY [Suspect]
     Dosage: 0.1 MG, BID
     Route: 048
     Dates: start: 20120427, end: 20120602

REACTIONS (3)
  - SYNCOPE [None]
  - SOMNOLENCE [None]
  - HEART RATE DECREASED [None]
